FAERS Safety Report 11299559 (Version 1)
Quarter: 2015Q3

REPORT INFORMATION
  Report Type: Spontaneous
  Country: US (occurrence: US)
  Receive Date: 20150722
  Receipt Date: 20150722
  Transmission Date: 20151125
  Serious: No
  Sender: FDA-Public Use
  Company Number: US-ELI LILLY AND COMPANY-US201210000649

PATIENT
  Sex: Male

DRUGS (2)
  1. HUMATROPE [Suspect]
     Active Substance: SOMATROPIN
     Indication: SMALL FOR DATES BABY
     Dosage: 0.675 MG, QD
     Route: 058
  2. HUMATROPE [Suspect]
     Active Substance: SOMATROPIN
     Dosage: 0.7 MG, UNKNOWN
     Route: 058

REACTIONS (3)
  - Incorrect dose administered [Unknown]
  - Drug dose omission [Unknown]
  - Device malfunction [Unknown]
